FAERS Safety Report 9461463 (Version 6)
Quarter: 2013Q4

REPORT INFORMATION
  Report Type: Report from Study
  Country: FR (occurrence: FR)
  Receive Date: 20130816
  Receipt Date: 20131111
  Transmission Date: 20140711
  Serious: Yes (Disabling)
  Sender: FDA-Public Use
  Company Number: PHHO2013FR010531

PATIENT
  Sex: 0

DRUGS (6)
  1. AFINITOR [Suspect]
     Dosage: 10 MG, QD
     Route: 048
     Dates: start: 20120502
  2. SOM230 [Suspect]
     Indication: PANCREATIC NEUROENDOCRINE TUMOUR
     Dosage: 60 MG, UNK
     Route: 030
     Dates: start: 20120502
  3. VICTOZA [Concomitant]
     Indication: DIABETES MELLITUS
     Dosage: 0.6 MG, UNK
     Dates: start: 20110606
  4. LEVEMIR [Concomitant]
     Indication: DIABETES MELLITUS
     Dosage: 12
     Dates: start: 20121203
  5. LEVOTHYROX [Concomitant]
     Indication: HYPOTHYROIDISM
     Dosage: UNK
  6. UN ALFA [Concomitant]
     Indication: HYPOCALCAEMIA
     Dosage: 5 MG, UNK
     Dates: start: 20110705

REACTIONS (1)
  - Tooth abscess [Recovered/Resolved with Sequelae]
